FAERS Safety Report 25237575 (Version 1)
Quarter: 2025Q2

REPORT INFORMATION
  Report Type: Report from Study
  Country: GB (occurrence: GB)
  Receive Date: 20250425
  Receipt Date: 20250425
  Transmission Date: 20250717
  Serious: Yes (Other)
  Sender: SAMSUNG BIOEPIS
  Company Number: GB-SAMSUNG BIOEPIS-SB-2025-13909

PATIENT
  Age: 36 Year
  Sex: Male

DRUGS (1)
  1. ETANERCEPT [Suspect]
     Active Substance: ETANERCEPT
     Indication: Juvenile idiopathic arthritis
     Route: 058

REACTIONS (5)
  - Near death experience [Unknown]
  - Illness [Unknown]
  - Dyspnoea [Unknown]
  - Vomiting [Unknown]
  - Migraine [Unknown]
